FAERS Safety Report 4939647-2 (Version None)
Quarter: 2006Q1

REPORT INFORMATION
  Report Type: 
  Country: None (occurrence: None)
  Receive Date: 20060310
  Receipt Date: 20051117
  Transmission Date: 20060701
  Serious: Yes (Hospitalization, Disabling)
  Sender: FDA-Public Use
  Company Number: US-MERCK-0511USA03132

PATIENT
  Age: 40 Year
  Sex: Male
  Weight: 114 kg

DRUGS (2)
  1. VIOXX [Suspect]
     Indication: FIBULA FRACTURE
     Route: 048
     Dates: start: 20010919, end: 20020427
  2. VIOXX [Suspect]
     Indication: TIBIA FRACTURE
     Route: 048
     Dates: start: 20010919, end: 20020427

REACTIONS (2)
  - CEREBROVASCULAR ACCIDENT [None]
  - DEPRESSION [None]
